FAERS Safety Report 15784557 (Version 1)
Quarter: 2019Q1

REPORT INFORMATION
  Report Type: Spontaneous
  Country: US (occurrence: US)
  Receive Date: 20190103
  Receipt Date: 20190103
  Transmission Date: 20190417
  Serious: Yes (Other)
  Sender: FDA-Public Use
  Company Number: US-ALKEM LABORATORIES LIMITED-US-ALKEM-2017-01571

PATIENT
  Age: 23 Year
  Sex: Female
  Weight: 65 kg

DRUGS (7)
  1. MYCOPHENOLATE MOFETIL. [Suspect]
     Active Substance: MYCOPHENOLATE MOFETIL
     Indication: RENAL TRANSPLANT
     Dosage: 500 MG, BID
     Route: 048
     Dates: start: 20160520, end: 20170820
  2. FAMOTIDINE. [Concomitant]
     Active Substance: FAMOTIDINE
     Indication: ABDOMINAL DISCOMFORT
     Dosage: 20 MG, BID
     Route: 065
     Dates: start: 20161108
  3. PREDNISOLONE. [Concomitant]
     Active Substance: PREDNISOLONE
     Indication: TRANSPLANT REJECTION
     Dosage: 5 MG, OD
     Route: 065
     Dates: start: 20160520
  4. CALCIUM CARBONATE. [Concomitant]
     Active Substance: CALCIUM CARBONATE
     Indication: UNEVALUABLE THERAPY
     Dosage: 3 DF, TID
     Route: 065
     Dates: start: 20161108
  5. AZATHIOPRINE. [Concomitant]
     Active Substance: AZATHIOPRINE
     Indication: IMMUNOSUPPRESSION
     Dosage: 50 MG, OD
     Route: 065
     Dates: start: 20161213
  6. VITAMIN D3 [Concomitant]
     Active Substance: CHOLECALCIFEROL
     Indication: UNEVALUABLE THERAPY
     Dosage: 2000 UNITS, OD
     Route: 065
     Dates: start: 20160520
  7. TACROLIMUS. [Concomitant]
     Active Substance: TACROLIMUS
     Indication: IMMUNOSUPPRESSION
     Dosage: 2 MG, BID
     Route: 065
     Dates: start: 20160520

REACTIONS (2)
  - Exposure during pregnancy [Unknown]
  - Abortion spontaneous [Unknown]

NARRATIVE: CASE EVENT DATE: 20170904
